FAERS Safety Report 8810735 (Version 1)
Quarter: 2012Q4

REPORT INFORMATION
  Report Type: 
  Country: US (occurrence: US)
  Receive Date: 20120927
  Receipt Date: 20120927
  Transmission Date: 20130627
  Serious: No
  Sender: FDA-Public Use
  Company Number: US-PFIZER INC-2012236538

PATIENT
  Age: 59 Year
  Sex: Female
  Weight: 90.7 kg

DRUGS (5)
  1. EFFEXOR XR [Suspect]
     Indication: ANXIETY
     Dosage: 37.5 mg, daily
     Dates: start: 20120824
  2. EFFEXOR XR [Suspect]
     Indication: DEPRESSION
  3. NORVASC [Suspect]
     Indication: HYPERTENSION
     Dosage: 7.5 mg, daily
  4. BENICAR [Suspect]
     Indication: HYPERTENSION
     Dosage: 40 mg, daily
  5. CLONIDINE [Suspect]
     Indication: HYPERTENSION
     Dosage: 0.1 mg, daily

REACTIONS (1)
  - Blood pressure increased [Not Recovered/Not Resolved]
